FAERS Safety Report 12136149 (Version 1)
Quarter: 2016Q1

REPORT INFORMATION
  Report Type: Report from Study
  Country: GB (occurrence: GB)
  Receive Date: 20160302
  Receipt Date: 20160302
  Transmission Date: 20160526
  Serious: Yes (Hospitalization)
  Sender: FDA-Public Use
  Company Number: GB-ROCHE-1715741

PATIENT
  Age: 84 Year
  Sex: Female
  Weight: 69 kg

DRUGS (6)
  1. CYCLOPHOSPHAMIDE. [Concomitant]
     Active Substance: CYCLOPHOSPHAMIDE
     Indication: HER-2 POSITIVE BREAST CANCER
     Dosage: TOTAL NUMBER OF INJECTIONS: 6, LINE 1 THERAPY
     Route: 042
     Dates: start: 201111, end: 201205
  2. 5-FU [Concomitant]
     Active Substance: FLUOROURACIL
     Indication: HER-2 POSITIVE BREAST CANCER
     Dosage: TOTAL NUMBER OF INJECTIONS: 6, LINE 1 THERAPY
     Route: 042
     Dates: start: 201111, end: 201205
  3. HERCEPTIN [Suspect]
     Active Substance: TRASTUZUMAB
     Indication: HER-2 POSITIVE BREAST CANCER
     Dosage: LINE 1 THERAPY, TOTAL NUMBER OF INJECTIONS: 40
     Route: 042
     Dates: start: 201111, end: 201402
  4. KADCYLA [Suspect]
     Active Substance: ADO-TRASTUZUMAB EMTANSINE
     Indication: HER-2 POSITIVE BREAST CANCER
     Dosage: LINE 3 THERAPY, TOTAL NUMBER OF INJECTIONS: 17
     Route: 042
     Dates: start: 201503, end: 201602
  5. XELODA [Suspect]
     Active Substance: CAPECITABINE
     Indication: HER-2 POSITIVE BREAST CANCER
     Dosage: LINE 2 THERAPY
     Route: 048
     Dates: start: 201402, end: 201503
  6. METHOTREXATE [Concomitant]
     Active Substance: METHOTREXATE
     Indication: HER-2 POSITIVE BREAST CANCER
     Dosage: TOTAL NUMBER OF INJECTIONS: 6, LINE 1 THERAPY
     Route: 042
     Dates: start: 201111, end: 201205

REACTIONS (3)
  - Febrile infection [Unknown]
  - General physical health deterioration [Unknown]
  - Neuropathy peripheral [Unknown]
